FAERS Safety Report 9052555 (Version 2)
Quarter: 2013Q1

REPORT INFORMATION
  Report Type: Report from Study
  Country: JP (occurrence: JP)
  Receive Date: 20130207
  Receipt Date: 20130305
  Transmission Date: 20140127
  Serious: Yes (Life-Threatening)
  Sender: FDA-Public Use
  Company Number: JP-GENZYME-THYM-1003623

PATIENT
  Age: 62 None
  Sex: Female
  Weight: 43 kg

DRUGS (12)
  1. THYMOGLOBULIN [Suspect]
     Indication: APLASTIC ANAEMIA
     Dosage: 150 MG, QD
     Route: 065
     Dates: start: 20120607, end: 20120607
  2. THYMOGLOBULIN [Suspect]
     Dosage: 30 MG, QD
     Route: 065
     Dates: start: 20120608, end: 20120608
  3. CICLOSPORIN [Concomitant]
     Indication: PRODUCT USED FOR UNKNOWN INDICATION
     Dosage: UNK
     Route: 065
     Dates: start: 20120521
  4. METENOLONE ACETATE [Concomitant]
     Indication: PRODUCT USED FOR UNKNOWN INDICATION
     Dosage: UNK
     Route: 065
     Dates: start: 20120521
  5. FILGRASTIM [Concomitant]
     Indication: FEBRILE NEUTROPENIA
     Dosage: UNK
     Route: 065
     Dates: start: 20120521, end: 20120912
  6. DEFERASIROX [Concomitant]
     Indication: PROPHYLAXIS
     Dosage: UNK
     Route: 065
     Dates: start: 20120528
  7. METHYLPREDNISOLONE SODIUM SUCCINATE [Concomitant]
     Indication: PROPHYLAXIS
     Dosage: UNK
     Route: 065
     Dates: start: 20120607, end: 20120628
  8. MEROPENEM [Concomitant]
     Indication: PREMEDICATION
     Dosage: UNK
     Route: 065
     Dates: start: 20120608, end: 20120613
  9. CEFEPIME [Concomitant]
     Indication: FEBRILE NEUTROPENIA
     Dosage: UNK
     Route: 065
     Dates: start: 20120707, end: 20120722
  10. CEFEPIME [Concomitant]
     Dosage: UNK
     Route: 065
     Dates: start: 20120818, end: 20120820
  11. DORIPENEM HYDRATE [Concomitant]
     Indication: FEBRILE NEUTROPENIA
     Dosage: UNK
     Route: 065
     Dates: start: 20120723, end: 20120806
  12. MICAFUNGIN SODIUM [Concomitant]
     Indication: FEBRILE NEUTROPENIA
     Dosage: UNK
     Route: 065
     Dates: start: 20120818, end: 20120820

REACTIONS (1)
  - Pulmonary oedema [Recovered/Resolved]
